FAERS Safety Report 18656484 (Version 1)
Quarter: 2020Q4

REPORT INFORMATION
  Report Type: Spontaneous
  Country: DE (occurrence: DE)
  Receive Date: 20201223
  Receipt Date: 20201223
  Transmission Date: 20210114
  Serious: Yes (Hospitalization, Other)
  Sender: FDA-Public Use
  Company Number: DE-PFIZER INC-2018242695

PATIENT
  Age: 59 Year
  Sex: Female

DRUGS (4)
  1. IBUPROFEN. [Suspect]
     Active Substance: IBUPROFEN
     Dosage: 600 MG, EVERY 3 WEEKS
  2. DICLOFENAC [Suspect]
     Active Substance: DICLOFENAC
     Dosage: 600 MG, 3 TIMES A WEEKS
  3. DICLOFENAC [Suspect]
     Active Substance: DICLOFENAC
     Dosage: 3 DF
  4. MARCUMAR [Suspect]
     Active Substance: PHENPROCOUMON
     Dosage: 3 MG, UNK (ACCORDING TO INR)

REACTIONS (7)
  - Anaemia [Unknown]
  - Product prescribing error [Unknown]
  - Dyspnoea [Unknown]
  - General physical health deterioration [Unknown]
  - Product monitoring error [Unknown]
  - Haematochezia [Unknown]
  - Dizziness [Unknown]
